FAERS Safety Report 12084150 (Version 2)
Quarter: 2017Q2

REPORT INFORMATION
  Report Type: Spontaneous
  Country: GB (occurrence: GB)
  Receive Date: 20160217
  Receipt Date: 20170512
  Transmission Date: 20170829
  Serious: Yes (Death, Hospitalization)
  Sender: FDA-Public Use
  Company Number: GB-JNJFOC-20160213728

PATIENT
  Age: 93 Year
  Sex: Female

DRUGS (8)
  1. MIRTAZAPINE ACTAVIS [Concomitant]
     Active Substance: MIRTAZAPINE
     Route: 065
  2. RAMIPRIL. [Concomitant]
     Active Substance: RAMIPRIL
     Route: 065
  3. VERAPAMIL [Concomitant]
     Active Substance: VERAPAMIL HYDROCHLORIDE
     Route: 065
  4. LOPERAMIDE [Concomitant]
     Active Substance: LOPERAMIDE
     Route: 065
  5. IBRUTINIB [Suspect]
     Active Substance: IBRUTINIB
     Indication: B-CELL SMALL LYMPHOCYTIC LYMPHOMA REFRACTORY
     Dosage: DOSE GIVEN AS 280 (UNITS NOT SPECIFIED)
     Route: 048
     Dates: start: 20150701, end: 20151031
  6. ACICLOVIR [Concomitant]
     Active Substance: ACYCLOVIR
     Route: 065
  7. CITALOPRAM [Concomitant]
     Active Substance: CITALOPRAM HYDROBROMIDE
     Route: 065
  8. ASPIRIN. [Concomitant]
     Active Substance: ASPIRIN
     Route: 065

REACTIONS (3)
  - Atrial fibrillation [Fatal]
  - Abdominal pain [Not Recovered/Not Resolved]
  - Acute abdomen [Not Recovered/Not Resolved]

NARRATIVE: CASE EVENT DATE: 20151029
